FAERS Safety Report 14178721 (Version 1)
Quarter: 2017Q4

REPORT INFORMATION
  Report Type: Spontaneous
  Country: GB (occurrence: GB)
  Receive Date: 20171110
  Receipt Date: 20171110
  Transmission Date: 20180321
  Serious: Yes (Hospitalization)
  Sender: FDA-Public Use
  Company Number: GB-TEVA-822722ACC

PATIENT
  Age: 73 Year
  Sex: Female

DRUGS (9)
  1. MACROGOL [Concomitant]
     Active Substance: POLYETHYLENE GLYCOLS
  2. VERAPAMIL HYDROCHLORIDE. [Concomitant]
     Active Substance: VERAPAMIL HYDROCHLORIDE
  3. FORMOTEROL [Concomitant]
     Active Substance: FORMOTEROL
  4. BECLOMETASONE [Concomitant]
     Active Substance: BECLOMETHASONE DIPROPIONATE
  5. HYDROXOCOBALAMIN [Concomitant]
     Active Substance: HYDROXOCOBALAMIN
  6. BUDESONIDE. [Concomitant]
     Active Substance: BUDESONIDE
  7. CYCLIZINE HYDROCHLORIDE [Concomitant]
     Active Substance: CYCLIZINE HYDROCHLORIDE
  8. PROCHLORPERAZINE MALEATE. [Concomitant]
     Active Substance: PROCHLORPERAZINE MALEATE
  9. VALSARTAN. [Suspect]
     Active Substance: VALSARTAN
     Indication: HYPERTENSION
     Dosage: 80 MILLIGRAM DAILY;
     Route: 048
     Dates: end: 20170825

REACTIONS (1)
  - Hyponatraemia [Unknown]
